FAERS Safety Report 7455289-1 (Version None)
Quarter: 2011Q2

REPORT INFORMATION
  Report Type: 
  Country: None (occurrence: None)
  Receive Date: 20110503
  Receipt Date: 20110426
  Transmission Date: 20111010
  Serious: Yes (Death, Hospitalization)
  Sender: FDA-Public Use
  Company Number: JP-BRISTOL-MYERS SQUIBB COMPANY-15510977

PATIENT
  Age: 74 Year
  Sex: Female
  Weight: 39 kg

DRUGS (1)
  1. TAXOL [Suspect]
     Indication: GASTRIC CANCER
     Dosage: INITIATED AT 85MG/WEEK 85MG THRICE MONTHLY
     Route: 042
     Dates: start: 20100827, end: 20101210

REACTIONS (1)
  - INTERSTITIAL LUNG DISEASE [None]
